FAERS Safety Report 7290094-0 (Version None)
Quarter: 2011Q1

REPORT INFORMATION
  Report Type: 
  Country: None (occurrence: None)
  Receive Date: 20110201
  Receipt Date: 20101231
  Transmission Date: 20110831
  Serious: Yes (Death)
  Sender: FDA-Public Use
  Company Number: AUR-APL-2011-00213

PATIENT
  Age: 59 Year
  Sex: Female

DRUGS (3)
  1. PALIPERIDONE [Suspect]
  2. VALPROIC ACID [Suspect]
  3. LISINOPRIL [Suspect]

REACTIONS (3)
  - SELF INJURIOUS BEHAVIOUR [None]
  - INTENTIONAL DRUG MISUSE [None]
  - COMPLETED SUICIDE [None]
